FAERS Safety Report 10168611 (Version 1)
Quarter: 2014Q2

REPORT INFORMATION
  Report Type: Report from Study
  Country: US (occurrence: US)
  Receive Date: 20140513
  Receipt Date: 20140513
  Transmission Date: 20141212
  Serious: Yes (Other)
  Sender: FDA-Public Use
  Company Number: US-ROCHE-1397560

PATIENT
  Age: 11 Year
  Sex: Female
  Weight: 39.3 kg

DRUGS (1)
  1. NUTROPIN AQ [Suspect]
     Indication: SILVER-RUSSELL SYNDROME
     Route: 058
     Dates: start: 20050731

REACTIONS (6)
  - Back injury [Unknown]
  - Headache [Unknown]
  - Muscle spasms [Unknown]
  - Rhinorrhoea [Unknown]
  - Drug dose omission [Unknown]
  - Injection site extravasation [Unknown]
